FAERS Safety Report 14699237 (Version 1)
Quarter: 2018Q1

REPORT INFORMATION
  Report Type: Spontaneous
  Country: US (occurrence: US)
  Receive Date: 20180330
  Receipt Date: 20180330
  Transmission Date: 20180509
  Serious: Yes (Other)
  Sender: FDA-Public Use
  Company Number: US-PFIZER INC-2018122017

PATIENT
  Age: 13 Year
  Sex: Female
  Weight: 52.16 kg

DRUGS (1)
  1. DIMETAPP [Suspect]
     Active Substance: BROMPHENIRAMINE\PSEUDOEPHEDRINE
     Indication: NASOPHARYNGITIS
     Dosage: 20 ML, DAILY
     Route: 048
     Dates: start: 201803, end: 201803

REACTIONS (1)
  - Hallucination [Recovered/Resolved]

NARRATIVE: CASE EVENT DATE: 201803
